FAERS Safety Report 8588353-4 (Version None)
Quarter: 2012Q3

REPORT INFORMATION
  Report Type: 
  Country: None (occurrence: None)
  Receive Date: 20120813
  Receipt Date: 20120801
  Transmission Date: 20120928
  Serious: Yes (Life-Threatening, Hospitalization)
  Sender: FDA-Public Use
  Company Number: US-BAYER-2011-112111

PATIENT
  Age: 27 Year
  Sex: Female
  Weight: 132 kg

DRUGS (11)
  1. COUGH AND COLD PREPARATIONS [Concomitant]
     Indication: NASOPHARYNGITIS
  2. IBUPROFEN [Concomitant]
     Indication: PAIN
  3. TYLENOL [Concomitant]
     Indication: PAIN
     Dosage: UNK
     Dates: start: 20090701
  4. ANTIBIOTICS [Concomitant]
  5. IBUPROFEN [Concomitant]
     Indication: PYREXIA
  6. YAZ [Suspect]
     Indication: PREMENSTRUAL SYNDROME
  7. EXCEDRIN [ACETYLSALICYLIC ACID,CAFFEINE,PARACETAMOL,SALICYLAMIDE] [Concomitant]
     Indication: HEADACHE
  8. TYLENOL [Concomitant]
     Indication: PYREXIA
  9. FIORICET [Concomitant]
     Dosage: UNK
     Dates: start: 20090101
  10. YAZ [Suspect]
     Indication: ACNE
     Dosage: UNK
     Dates: start: 20080901, end: 20090701
  11. MULTI-VITAMINS [Concomitant]
     Indication: MALAISE

REACTIONS (8)
  - PULMONARY EMBOLISM [None]
  - INJURY [None]
  - DEEP VEIN THROMBOSIS [None]
  - MUSCLE SPASMS [None]
  - PAIN [None]
  - PALPITATIONS [None]
  - ABASIA [None]
  - DYSPNOEA [None]
